FAERS Safety Report 12498200 (Version 1)
Quarter: 2016Q2

REPORT INFORMATION
  Report Type: Spontaneous
  Country: PT (occurrence: PT)
  Receive Date: 20160627
  Receipt Date: 20160627
  Transmission Date: 20160815
  Serious: Yes (Other)
  Sender: FDA-Public Use
  Company Number: PT-009507513-1606PRT009204

PATIENT
  Age: 31 Year
  Sex: Female

DRUGS (2)
  1. RIFAMPIN. [Interacting]
     Active Substance: RIFAMPIN
     Indication: BRUCELLOSIS
     Dosage: UNK
     Dates: start: 20160525
  2. CIRCLET [Suspect]
     Active Substance: ETHINYL ESTRADIOL\ETONOGESTREL
     Indication: CONTRACEPTION
     Dosage: UNKNOWN
     Dates: start: 2009, end: 2016

REACTIONS (4)
  - Drug interaction [Unknown]
  - Brucellosis [Unknown]
  - Metrorrhagia [Recovered/Resolved]
  - Incorrect drug administration duration [Unknown]

NARRATIVE: CASE EVENT DATE: 20160524
